FAERS Safety Report 9347047 (Version 3)
Quarter: 2014Q3

REPORT INFORMATION
  Report Type: Spontaneous
  Country: US (occurrence: US)
  Receive Date: 20130613
  Receipt Date: 20140710
  Transmission Date: 20150326
  Serious: Yes (Other)
  Sender: FDA-Public Use
  Company Number: US-GLAXOSMITHKLINE-A1026796A

PATIENT
  Age: 65 Year
  Sex: Female
  Weight: 103.6 kg

DRUGS (1)
  1. FLUTICASONE PROPIONATE. [Suspect]
     Active Substance: FLUTICASONE PROPIONATE
     Indication: PRODUCT USED FOR UNKNOWN INDICATION
     Route: 045
     Dates: start: 2008

REACTIONS (4)
  - Myringotomy [Unknown]
  - Ear infection [Unknown]
  - Drug ineffective [Unknown]
  - Sinusitis [Unknown]
